FAERS Safety Report 4791919-0 (Version None)
Quarter: 2005Q4

REPORT INFORMATION
  Report Type: 
  Country: None (occurrence: None)
  Receive Date: 20051005
  Receipt Date: 20050922
  Transmission Date: 20060501
  Serious: Yes (Other)
  Sender: FDA-Public Use
  Company Number: 2005-BP-16804RO

PATIENT
  Age: 76 Year
  Sex: Male

DRUGS (3)
  1. CLARITHROMYCIN [Suspect]
     Indication: GASTRITIS
     Dosage: 1 GM/DAY (NR), PO
     Route: 048
  2. CLARITHROMYCIN [Suspect]
     Indication: HELICOBACTER INFECTION
     Dosage: 1 GM/DAY (NR), PO
     Route: 048
  3. COLCHICINE (COLCHICINE) [Suspect]
     Indication: FAMILIAL MEDITERRANEAN FEVER
     Dosage: 1.5 MG/DAY (NR), PO
     Route: 048

REACTIONS (11)
  - ABDOMINAL PAIN [None]
  - ALANINE AMINOTRANSFERASE INCREASED [None]
  - ALOPECIA [None]
  - DIARRHOEA HAEMORRHAGIC [None]
  - HAEMOGLOBIN DECREASED [None]
  - LIVER DISORDER [None]
  - METABOLIC ACIDOSIS [None]
  - PANCYTOPENIA [None]
  - PYREXIA [None]
  - RENAL FAILURE [None]
  - VOMITING [None]
